FAERS Safety Report 9019799 (Version 1)
Quarter: 2013Q1

REPORT INFORMATION
  Report Type: Spontaneous
  Country: BR (occurrence: BR)
  Receive Date: 20130118
  Receipt Date: 20130118
  Transmission Date: 20140127
  Serious: Yes (Hospitalization)
  Sender: FDA-Public Use
  Company Number: BR-009507513-1212BRA004704

PATIENT
  Age: 66 None
  Sex: Female
  Weight: 58 kg

DRUGS (4)
  1. VICTRELIS [Suspect]
     Indication: HEPATITIS C
     Dosage: 800 MG, TID
     Route: 048
     Dates: start: 20121128
  2. RIBAVIRIN [Suspect]
     Indication: HEPATITIS C
     Dosage: 2 DF, QAM
     Route: 048
     Dates: start: 20121031
  3. RIBAVIRIN [Suspect]
     Dosage: 2 DF, QPM
     Route: 048
     Dates: start: 20121031
  4. INTERFERON (UNSPECIFIED) [Concomitant]
     Indication: HEPATITIS C
     Dosage: 80 MICROGRAM, QW
     Dates: start: 20121031

REACTIONS (8)
  - Transfusion [Unknown]
  - Dysgeusia [Not Recovered/Not Resolved]
  - Asthenia [Not Recovered/Not Resolved]
  - Decreased appetite [Not Recovered/Not Resolved]
  - Anaemia [Not Recovered/Not Resolved]
  - Mood altered [Not Recovered/Not Resolved]
  - Retching [Unknown]
  - Pruritus generalised [Not Recovered/Not Resolved]
